FAERS Safety Report 22109856 (Version 1)
Quarter: 2023Q1

REPORT INFORMATION
  Report Type: Spontaneous
  Country: US (occurrence: None)
  Receive Date: 20230316
  Receipt Date: 20230316
  Transmission Date: 20230417
  Serious: No
  Sender: FDA-Public Use
  Company Number: None

PATIENT
  Sex: Female

DRUGS (1)
  1. TOLVAPTAN [Suspect]
     Active Substance: TOLVAPTAN
     Indication: Lung carcinoma cell type unspecified stage 0
     Dosage: 30MG DAILY ORAL
     Route: 048
     Dates: start: 202212

REACTIONS (4)
  - Lower limb fracture [None]
  - Deep vein thrombosis [None]
  - Platelet count decreased [None]
  - Therapy interrupted [None]
